FAERS Safety Report 15671018 (Version 5)
Quarter: 2019Q3

REPORT INFORMATION
  Report Type: Report from Study
  Country: US (occurrence: US)
  Receive Date: 20181129
  Receipt Date: 20190827
  Transmission Date: 20191004
  Serious: Yes (Life-Threatening, Hospitalization, Other)
  Sender: FDA-Public Use
  Company Number: US-SAKK-2018SA321599AA

PATIENT
  Age: 64 Year
  Sex: Female

DRUGS (3)
  1. IBUPROFEN. [Concomitant]
     Active Substance: IBUPROFEN
     Indication: ARTHRITIS
  2. CORTISONE [Concomitant]
     Active Substance: CORTISONE
     Indication: ARTHRITIS
  3. INSULIN GLARGINE [Suspect]
     Active Substance: INSULIN GLARGINE
     Indication: TYPE 2 DIABETES MELLITUS
     Dosage: 40 U, BID (IN MORNING AND EVENING)
     Route: 058
     Dates: start: 20080615

REACTIONS (7)
  - Myocardial infarction [Recovered/Resolved]
  - Coronary artery thrombosis [Recovered/Resolved]
  - Atrioventricular block [Recovered/Resolved]
  - Chest pain [Recovered/Resolved]
  - Gait inability [Unknown]
  - Inappropriate schedule of product administration [Unknown]
  - Brain death [Recovered/Resolved]

NARRATIVE: CASE EVENT DATE: 201810
